FAERS Safety Report 13500175 (Version 1)
Quarter: 2017Q2

REPORT INFORMATION
  Report Type: Spontaneous
  Country: IT (occurrence: IT)
  Receive Date: 20170501
  Receipt Date: 20170501
  Transmission Date: 20170830
  Serious: Yes (Death)
  Sender: FDA-Public Use
  Company Number: IT-CORDEN PHARMA LATINA S.P.A.-IT-2017COR000114

PATIENT
  Sex: Male

DRUGS (7)
  1. DACTINOMYCIN [Suspect]
     Active Substance: DACTINOMYCIN
     Indication: GERM CELL CANCER
     Dosage: 0.5 MG, ON DAYS 1 AND 2 (EVERY 21 DAYS)
     Route: 040
  2. VINCRISTINE [Suspect]
     Active Substance: VINCRISTINE
     Indication: GERM CELL CANCER
     Dosage: 1 MG/M2, ON DAY 8 (EVERY 21 DAYS)
  3. METHOTREXATE. [Suspect]
     Active Substance: METHOTREXATE
     Indication: GERM CELL CANCER
     Dosage: 100 MG/M2, IN 100ML NS OVER 15 MINUTES ON DAY 1 (EVERY 21 DAYS)
  4. ETOPOSIDE. [Suspect]
     Active Substance: ETOPOSIDE
     Indication: GERM CELL CANCER
     Dosage: 100 MG/M2, IN 250 ML OF NS OVER 1 HOUR ON DAYS 1 AND 2 (EVERY 21 DAYS)
  5. METHOTREXATE. [Suspect]
     Active Substance: METHOTREXATE
     Dosage: 200 MG/M2, IN 500ML OF NS OVER 12 HOURS ON DAY 1 (EVERY 21 DAYS)
  6. FOLINIC ACID                       /00566702/ [Suspect]
     Active Substance: LEUCOVORIN CALCIUM
     Indication: GERM CELL CANCER
     Dosage: 25 MG, EVERY 6 HOURS ON DAYS 2 AND 3 (EVERY 21 DAYS)
     Route: 048
  7. CYCLOPHOSPHAMIDE. [Suspect]
     Active Substance: CYCLOPHOSPHAMIDE
     Indication: GERM CELL CANCER
     Dosage: 600 MG/M2, ON DAY 8 (EVERY 21 DAYS)

REACTIONS (2)
  - Toxicity to various agents [Fatal]
  - Cerebral haemorrhage [Fatal]
